FAERS Safety Report 10371792 (Version 1)
Quarter: 2014Q3

REPORT INFORMATION
  Report Type: Spontaneous
  Country: JP (occurrence: JP)
  Receive Date: 20140808
  Receipt Date: 20140808
  Transmission Date: 20150326
  Serious: Yes (Hospitalization)
  Sender: FDA-Public Use
  Company Number: JP-PFIZER INC-2014219100

PATIENT
  Age: 33 Year
  Sex: Male

DRUGS (7)
  1. NORTRIPTYLINE HYDROCHLORIDE. [Suspect]
     Active Substance: NORTRIPTYLINE HYDROCHLORIDE
     Dosage: 600 MG, SINGLE
     Route: 048
  2. VERAPAMIL HYDROCHLORIDE. [Suspect]
     Active Substance: VERAPAMIL HYDROCHLORIDE
     Dosage: 240 MG, SINGLE
     Route: 048
  3. TRIAZOLAM. [Suspect]
     Active Substance: TRIAZOLAM
     Dosage: 0.5 MG, SINGLE
     Route: 048
  4. BIPERIDEN HYDROCHLORIDE [Suspect]
     Active Substance: BIPERIDEN HYDROCHLORIDE
     Dosage: 56 MG, SINGLE
     Route: 048
  5. CLOXAZOLAM [Suspect]
     Active Substance: CLOXAZOLAM
     Dosage: 48 MG, SINGLE
     Route: 048
  6. DULOXETINE HYDROCHLORIDE. [Suspect]
     Active Substance: DULOXETINE HYDROCHLORIDE
     Dosage: 1710 MG, SINGLE
     Route: 048
  7. ARIPIPRAZOLE [Suspect]
     Active Substance: ARIPIPRAZOLE
     Dosage: 156 MG, SINGLE
     Route: 048

REACTIONS (6)
  - Ventricular arrhythmia [Recovered/Resolved]
  - Pneumonia aspiration [Unknown]
  - Altered state of consciousness [Unknown]
  - Electrocardiogram QT prolonged [Unknown]
  - Overdose [Unknown]
  - Respiratory arrest [Unknown]
